FAERS Safety Report 7810470-4 (Version None)
Quarter: 2011Q4

REPORT INFORMATION
  Report Type: 
  Country: None (occurrence: None)
  Receive Date: 20111012
  Receipt Date: 20111003
  Transmission Date: 20120403
  Serious: Yes (Other)
  Sender: FDA-Public Use
  Company Number: US-ASTRAZENECA-2011SE54919

PATIENT
  Age: 75 Year
  Sex: Female

DRUGS (1)
  1. TOPROL-XL [Suspect]
     Route: 048

REACTIONS (5)
  - UPPER LIMB FRACTURE [None]
  - FATIGUE [None]
  - SPINAL COLUMN STENOSIS [None]
  - FALL [None]
  - MALAISE [None]
